FAERS Safety Report 6666692-1 (Version None)
Quarter: 2010Q1

REPORT INFORMATION
  Report Type: 
  Country: None (occurrence: None)
  Receive Date: 20100331
  Receipt Date: 20100320
  Transmission Date: 20100710
  Serious: Yes (Other)
  Sender: FDA-Public Use
  Company Number: 2010AP000561

PATIENT
  Age: 44 Year
  Sex: Female

DRUGS (9)
  1. LITHIUM CARBONATE CAP [Suspect]
  2. DULOXETINE HYDROCHLORIDE [Suspect]
  3. QUETIAPINE FUMARATE [Suspect]
  4. FENTANYL [Suspect]
     Dosage: 250 UG; IV
     Route: 042
  5. ONDANSETRON [Suspect]
     Indication: PROPHYLAXIS OF NAUSEA AND VOMITING
     Dosage: 4 MG; IV
     Route: 042
  6. MIDAZOLAM HCL [Concomitant]
  7. CLONAZEPAM [Concomitant]
  8. LAMOTRIGINE [Concomitant]
  9. TOPIRAMATE [Concomitant]

REACTIONS (6)
  - APHASIA [None]
  - DISTURBANCE IN ATTENTION [None]
  - DRUG INTERACTION [None]
  - NYSTAGMUS [None]
  - SEROTONIN SYNDROME [None]
  - UNRESPONSIVE TO STIMULI [None]
